FAERS Safety Report 5123917-1 (Version None)
Quarter: 2006Q3

REPORT INFORMATION
  Report Type: 
  Country: None (occurrence: None)
  Receive Date: 20060811
  Receipt Date: 20060522
  Transmission Date: 20061208
  Serious: No
  Sender: FDA-Public Use
  Company Number: S06-USA-02058-01

PATIENT
  Age: 63 Year
  Sex: Male

DRUGS (12)
  1. NAMENDA [Suspect]
     Indication: DEMENTIA ALZHEIMER'S TYPE
     Dosage: 5 MG QD PO
     Route: 048
     Dates: start: 20060512, end: 20060513
  2. ARICEPT [Concomitant]
  3. AMITRIPTYLINE HCL [Concomitant]
  4. LIPITOR [Concomitant]
  5. VITAMINS [Concomitant]
  6. FISH OIL [Concomitant]
  7. HYDROCHLOROTHIAZIDE [Concomitant]
  8. TOPROL-XL [Concomitant]
  9. VISTARIL [Concomitant]
  10. DOXYCYCLINE [Concomitant]
  11. PLAVIX [Concomitant]
  12. ASPIRIN [Concomitant]

REACTIONS (5)
  - DYSARTHRIA [None]
  - DYSKINESIA [None]
  - HYPERSENSITIVITY [None]
  - MEMORY IMPAIRMENT [None]
  - TREMOR [None]
